FAERS Safety Report 6058706-7 (Version None)
Quarter: 2009Q1

REPORT INFORMATION
  Report Type: 
  Country: None (occurrence: None)
  Receive Date: 20090130
  Receipt Date: 20090121
  Transmission Date: 20090719
  Serious: Yes (Life-Threatening, Hospitalization)
  Sender: FDA-Public Use
  Company Number: ES-CELGENEUS-144-21880-09010777

PATIENT
  Sex: Female

DRUGS (3)
  1. REVLIMID [Suspect]
     Route: 048
     Dates: start: 20080218, end: 20080927
  2. EXJADE [Suspect]
     Indication: IRON OVERLOAD
     Route: 065
     Dates: start: 20080917, end: 20080927
  3. AMERIDE [Concomitant]
     Route: 065

REACTIONS (4)
  - BRONCHOSPASM [None]
  - HYPOTENSION [None]
  - RASH [None]
  - THROMBOCYTOPENIA [None]
